FAERS Safety Report 10910008 (Version 1)
Quarter: 2015Q1

REPORT INFORMATION
  Report Type: Spontaneous
  Country: US (occurrence: US)
  Receive Date: 20150312
  Receipt Date: 20150312
  Transmission Date: 20150721
  Serious: No
  Sender: FDA-Public Use
  Company Number: US-SA-2014SA088794

PATIENT
  Age: 68 Year
  Sex: Female

DRUGS (3)
  1. OTHER OTC^S MEDICATIONS [Concomitant]
  2. CLARITIN [Concomitant]
     Active Substance: LORATADINE
  3. NASACORT ALLERGY 24HR [Suspect]
     Active Substance: TRIAMCINOLONE ACETONIDE
     Indication: SEASONAL ALLERGY
     Route: 048

REACTIONS (1)
  - Dysphagia [Recovered/Resolved]
